FAERS Safety Report 4380123-6 (Version None)
Quarter: 2004Q2

REPORT INFORMATION
  Report Type: 
  Country: None (occurrence: None)
  Receive Date: 20040616
  Receipt Date: 20040614
  Transmission Date: 20050107
  Serious: Yes (Other)
  Sender: FDA-Public Use
  Company Number: 04-06-0843

PATIENT
  Age: 59 Year
  Sex: Female

DRUGS (3)
  1. METRONIDAZOLE [Suspect]
     Dosage: 500MG INTRAVENOUS
     Route: 042
     Dates: start: 20030825, end: 20040601
  2. CASPOFUNGIN UNKNOWN [Suspect]
     Dosage: 50MG INTRAVENOUS
     Route: 042
     Dates: start: 20040527, end: 20040601
  3. TAZOCIN [Concomitant]

REACTIONS (2)
  - ERYTHEMA [None]
  - GANGRENE [None]
